FAERS Safety Report 9316138 (Version 4)
Quarter: 2014Q2

REPORT INFORMATION
  Report Type: Report from Study
  Country: CA (occurrence: CA)
  Receive Date: 20130530
  Receipt Date: 20140409
  Transmission Date: 20141212
  Serious: No
  Sender: FDA-Public Use
  Company Number: CA-ROCHE-1229974

PATIENT
  Sex: Female
  Weight: 63.4 kg

DRUGS (9)
  1. RITUXAN [Suspect]
     Indication: SYSTEMIC LUPUS ERYTHEMATOSUS
     Dosage: LAST DOSE RECEIVED ON 20/DEC/2012.
     Route: 042
     Dates: start: 20121207
  2. RITUXAN [Suspect]
     Indication: OFF LABEL USE
  3. PREDNISONE [Suspect]
     Indication: SYSTEMIC LUPUS ERYTHEMATOSUS
     Route: 065
  4. ACETAMINOPHEN [Concomitant]
     Indication: PREMEDICATION
     Route: 048
     Dates: start: 20121220
  5. DIPHENHYDRAMINE HCL [Concomitant]
     Indication: PREMEDICATION
     Route: 048
     Dates: start: 20121220
  6. METHOTREXATE [Concomitant]
  7. HYDROXYCHLOROQUINE [Concomitant]
  8. MYCOPHENOLATE MOFETIL [Concomitant]
  9. TARO-CLOBETASOL [Concomitant]
     Route: 061

REACTIONS (2)
  - Weight increased [Unknown]
  - Weight decreased [Unknown]
